FAERS Safety Report 9355411 (Version 1)
Quarter: 2013Q2

REPORT INFORMATION
  Report Type: Spontaneous
  Country: US (occurrence: None)
  Receive Date: 20130618
  Receipt Date: 20130618
  Transmission Date: 20140414
  Serious: Yes (Hospitalization)
  Sender: FDA-Public Use
  Company Number: None

PATIENT
  Age: 41 Year
  Sex: Male
  Weight: 78.1 kg

DRUGS (1)
  1. ALFA 2 INTERFERON 2B [Suspect]
     Dates: start: 20121210

REACTIONS (3)
  - Mass [None]
  - Skin infection [None]
  - Purulence [None]
